FAERS Safety Report 13135523 (Version 3)
Quarter: 2017Q1

REPORT INFORMATION
  Report Type: Report from Study
  Country: None (occurrence: RO)
  Receive Date: 20170120
  Receipt Date: 20170302
  Transmission Date: 20170428
  Serious: Yes (Death, Hospitalization)
  Sender: FDA-Public Use
  Company Number: RO-ABBVIE-17P-135-1846542-00

PATIENT
  Sex: Female

DRUGS (1)
  1. DUODOPA [Suspect]
     Active Substance: CARBIDOPA\LEVODOPA
     Indication: PARKINSON^S DISEASE
     Dosage: 16/24 H: MD 6 ML, CR 3,8 ML/H, ED 2,5 ML
     Route: 050
     Dates: start: 20141127

REACTIONS (10)
  - Pyelonephritis acute [Fatal]
  - Sepsis [Recovering/Resolving]
  - Hospitalisation [Fatal]
  - Urosepsis [Fatal]
  - General physical health deterioration [Unknown]
  - Urinary tract infection [Recovering/Resolving]
  - Parkinson^s disease [Fatal]
  - Cognitive disorder [Fatal]
  - Dementia [Fatal]
  - Pyrexia [Unknown]

NARRATIVE: CASE EVENT DATE: 20170114
